FAERS Safety Report 4526569-4 (Version None)
Quarter: 2004Q4

REPORT INFORMATION
  Report Type: 
  Country: None (occurrence: None)
  Receive Date: 20041213
  Receipt Date: 20041129
  Transmission Date: 20050328
  Serious: Yes (Other)
  Sender: FDA-Public Use
  Company Number: 2004-UK-01276UK

PATIENT
  Age: 65 Year
  Sex: Male

DRUGS (5)
  1. MOBIC [Suspect]
     Indication: OSTEOARTHRITIS
     Dosage: 15 MG (NR, NOT REPORTED) PO
     Route: 048
     Dates: start: 20041101, end: 20041112
  2. ASPIRIN [Concomitant]
  3. ATENOLOL (ATENOLOL) (NR) [Concomitant]
  4. LACIDIPINE (LACIDIPINE) (NR) [Suspect]
  5. SIMVASTATIN (SIMVASTATIN) (NR) [Concomitant]

REACTIONS (2)
  - CEREBROVASCULAR ACCIDENT [None]
  - VITH NERVE PARALYSIS [None]
